FAERS Safety Report 17401410 (Version 1)
Quarter: 2020Q1

REPORT INFORMATION
  Report Type: Report from Study
  Country: PK (occurrence: PK)
  Receive Date: 20200211
  Receipt Date: 20200211
  Transmission Date: 20200409
  Serious: Yes (Death)
  Sender: FDA-Public Use
  Company Number: NVSC2020PK033695

PATIENT
  Sex: Male
  Weight: 52 kg

DRUGS (1)
  1. TASIGNA [Suspect]
     Active Substance: NILOTINIB
     Indication: CHRONIC MYELOID LEUKAEMIA
     Dosage: 200 MG, 2 IN THE MORNING AND 1 IN EVENING
     Route: 048
     Dates: start: 20180807

REACTIONS (1)
  - Cardio-respiratory arrest [Fatal]
